FAERS Safety Report 8400082 (Version 2)
Quarter: 2013Q2

REPORT INFORMATION
  Report Type: Report from Study
  Country: US (occurrence: US)
  Receive Date: 20120210
  Receipt Date: 20130610
  Transmission Date: 20140414
  Serious: Yes (Hospitalization)
  Sender: FDA-Public Use
  Company Number: US-ROCHE-1036684

PATIENT
  Age: 41 Year
  Sex: Male

DRUGS (2)
  1. VISMODEGIB [Suspect]
     Indication: BASAL CELL CARCINOMA
     Dosage: LAST DOSE PRIOR TO SAE: 28 NOV 2011?LAST DOSE ADMINISTERED: 150MG
     Route: 048
     Dates: start: 20081009
  2. VISMODEGIB [Suspect]
     Dosage: LAST DOSE PRIOR TO SAE: 28 NOV 2011?LAST DOSE ADMINISTERED: 150MG
     Route: 048

REACTIONS (1)
  - Lung neoplasm malignant [Recovered/Resolved]
